FAERS Safety Report 5536848-X (Version None)
Quarter: 2007Q4

REPORT INFORMATION
  Report Type: 
  Country: None (occurrence: None)
  Receive Date: 20071206
  Receipt Date: 20061120
  Transmission Date: 20080405
  Serious: Yes (Other)
  Sender: FDA-Public Use
  Company Number: US-AMGEN-STX199281

PATIENT
  Sex: Female
  Weight: 59.9 kg

DRUGS (12)
  1. ENBREL [Suspect]
     Indication: RHEUMATOID ARTHRITIS
     Route: 058
     Dates: start: 20020123, end: 20061106
  2. LIPITOR [Concomitant]
     Route: 048
     Dates: start: 20060104
  3. METHOTREXATE [Concomitant]
  4. FOSAMAX [Concomitant]
     Route: 048
     Dates: start: 20061026
  5. FOLIC ACID [Concomitant]
     Route: 048
     Dates: start: 20060601
  6. MOTRIN [Concomitant]
     Route: 048
     Dates: start: 20060506
  7. TYLENOL W/ CODEINE NO. 3 [Concomitant]
     Route: 048
     Dates: start: 20060605
  8. SYNTHROID [Concomitant]
     Route: 048
     Dates: start: 20060928
  9. RHINOCORT [Concomitant]
  10. VITAMIN D [Concomitant]
     Route: 048
     Dates: start: 20060905
  11. FELDENE [Concomitant]
     Route: 048
     Dates: start: 20061023
  12. PERCOCET [Concomitant]
     Route: 048
     Dates: start: 20061016

REACTIONS (1)
  - LYMPHOMA [None]
